FAERS Safety Report 5904194-8 (Version None)
Quarter: 2008Q3

REPORT INFORMATION
  Report Type: 
  Country: None (occurrence: None)
  Receive Date: 20080930
  Receipt Date: 20080930
  Transmission Date: 20090109
  Serious: Yes (Hospitalization)
  Sender: FDA-Public Use
  Company Number: None

PATIENT
  Age: 74 Year
  Sex: Male

DRUGS (18)
  1. RANIBIZUMAB 0.5 MG [Suspect]
     Indication: RETINAL ISCHAEMIA
     Dosage: 0.5 MG OPHTHALMIC
     Route: 047
     Dates: start: 20060113, end: 20080521
  2. RANIBIZUMAB 0.5 MG [Suspect]
     Indication: RETINAL VEIN OCCLUSION
     Dosage: 0.5 MG OPHTHALMIC
     Route: 047
     Dates: start: 20060113, end: 20080521
  3. AMBIEN [Concomitant]
  4. AMIODARONE [Concomitant]
  5. ASPIRIN [Concomitant]
  6. COUMADIN [Concomitant]
  7. CO Q-10 [Concomitant]
  8. DIOVAN [Concomitant]
  9. FUROSEMIDE [Concomitant]
  10. ISMO [Concomitant]
  11. K-DUR [Concomitant]
  12. MINOCYCLINE HCL [Concomitant]
  13. MULTIVITAIN WITH IRON [Concomitant]
  14. NEXIUM [Concomitant]
  15. NORCO [Concomitant]
  16. TOPROL-XL [Concomitant]
  17. ZETIA [Concomitant]
  18. ZOCOR [Suspect]

REACTIONS (1)
  - CARDIAC FAILURE CONGESTIVE [None]
